FAERS Safety Report 8791844 (Version 1)
Quarter: 2012Q4

REPORT INFORMATION
  Report Type: Report from Study
  Country: JP (occurrence: JP)
  Receive Date: 20120918
  Receipt Date: 20120918
  Transmission Date: 20130627
  Serious: Yes (Other)
  Sender: FDA-Public Use
  Company Number: JP-UCBSA-064024

PATIENT
  Age: 64 Year
  Sex: Male
  Weight: 60 kg

DRUGS (3)
  1. E KEPPRA [Suspect]
     Indication: CONVULSION PROPHYLAXIS
     Route: 048
     Dates: start: 20120328
  2. TEGRETOL [Suspect]
     Indication: CONVULSION PROPHYLAXIS
     Route: 048
     Dates: start: 20120328, end: 20120423
  3. ALEVIATIN [Concomitant]
     Indication: CONVULSION PROPHYLAXIS
     Dosage: DAILY DOSE: 250 MG IV
     Route: 042
     Dates: start: 20120328, end: 20120328

REACTIONS (2)
  - Toxic skin eruption [Recovered/Resolved]
  - Anaemia [Recovered/Resolved]
